FAERS Safety Report 7979188-1 (Version None)
Quarter: 2011Q4

REPORT INFORMATION
  Report Type: 
  Country: None (occurrence: None)
  Receive Date: 20111129
  Receipt Date: 20110803
  Transmission Date: 20120403
  Serious: Yes (Other)
  Sender: FDA-Public Use
  Company Number: PHHY2011US21218

PATIENT
  Age: 84 Year
  Sex: Male

DRUGS (1)
  1. AFINITOR [Suspect]
     Indication: MALIGNANT URINARY TRACT NEOPLASM
     Dosage: 10 MG, QD, ORAL, 5 MG, QD, ORAL
     Route: 048
     Dates: start: 20110214, end: 20110803

REACTIONS (6)
  - NEOPLASM MALIGNANT [None]
  - PLATELET COUNT DECREASED [None]
  - DIARRHOEA [None]
  - DECREASED APPETITE [None]
  - NEOPLASM PROGRESSION [None]
  - NAUSEA [None]
